FAERS Safety Report 17132399 (Version 1)
Quarter: 2019Q4

REPORT INFORMATION
  Report Type: Spontaneous
  Country: US (occurrence: US)
  Receive Date: 20191210
  Receipt Date: 20191210
  Transmission Date: 20200122
  Serious: Yes (Other)
  Sender: FDA-Public Use
  Company Number: US-GRANULES INDIA LIMITED-2077653

PATIENT
  Age: 76 Year
  Sex: Female

DRUGS (5)
  1. IBUPROFEN TABLETS USP 400 MG 600 MG 800 MG [Suspect]
     Active Substance: IBUPROFEN
     Indication: ARTHRITIS
     Route: 048
     Dates: start: 201911
  2. POTASSIUM [Concomitant]
     Active Substance: POTASSIUM
     Route: 065
  3. OXYBUTYRIN 5% [Concomitant]
     Route: 065
  4. TORASEMIDE [Concomitant]
     Active Substance: TORSEMIDE
     Route: 065
  5. ATENOLOL. [Concomitant]
     Active Substance: ATENOLOL
     Route: 065

REACTIONS (3)
  - Mental impairment [Unknown]
  - Feeling abnormal [Unknown]
  - Disturbance in attention [Unknown]

NARRATIVE: CASE EVENT DATE: 20191203
